FAERS Safety Report 6631573-6 (Version None)
Quarter: 2010Q1

REPORT INFORMATION
  Report Type: 
  Country: None (occurrence: None)
  Receive Date: 20100312
  Receipt Date: 20100309
  Transmission Date: 20100710
  Serious: Yes (Death, Hospitalization)
  Sender: FDA-Public Use
  Company Number: PHEH2009US17201

PATIENT
  Sex: Female

DRUGS (1)
  1. EXJADE [Suspect]
     Dosage: 1125 MG, QD
     Route: 048

REACTIONS (2)
  - DEATH [None]
  - HIP FRACTURE [None]
